FAERS Safety Report 5391366-7 (Version None)
Quarter: 2007Q3

REPORT INFORMATION
  Report Type: 
  Country: None (occurrence: None)
  Receive Date: 20070716
  Receipt Date: 20070716
  Transmission Date: 20080115
  Serious: No
  Sender: FDA-Public Use
  Company Number: None

PATIENT
  Age: 3 Year
  Sex: Male

DRUGS (2)
  1. ZYRTEC [Suspect]
     Dosage: TABLET
  2. ZYRTEC [Suspect]
     Dosage: TABLET, CHEWABLE

REACTIONS (3)
  - DRUG DISPENSING ERROR [None]
  - INCORRECT DRUG DOSAGE FORM ADMINISTERED [None]
  - MEDICATION ERROR [None]
